FAERS Safety Report 9004337 (Version 1)
Quarter: 2013Q1

REPORT INFORMATION
  Report Type: Spontaneous
  Country: US (occurrence: None)
  Receive Date: 20130104
  Receipt Date: 20130104
  Transmission Date: 20140127
  Serious: Yes (Other)
  Sender: FDA-Public Use
  Company Number: None

PATIENT
  Age: 45 Year
  Sex: Male
  Weight: 77.11 kg

DRUGS (1)
  1. ISENTRESS [Suspect]
     Dosage: 400MG TWICE A DAY DENTAL
     Route: 004
     Dates: start: 20120401, end: 20121115

REACTIONS (2)
  - Amnesia [None]
  - Depression [None]
